FAERS Safety Report 10130238 (Version 1)
Quarter: 2014Q2

REPORT INFORMATION
  Report Type: Spontaneous
  Country: US (occurrence: None)
  Receive Date: 20140425
  Receipt Date: 20140425
  Transmission Date: 20141212
  Serious: Yes (Disabling)
  Sender: FDA-Public Use
  Company Number: None

PATIENT
  Age: 57 Year
  Sex: Male
  Weight: 104.33 kg

DRUGS (1)
  1. BETHAMETHASONE [Suspect]
     Indication: EPIDURAL INJECTION
     Dosage: ONE TIME INJECTION

REACTIONS (3)
  - Ill-defined disorder [None]
  - Osteonecrosis [None]
  - Chondropathy [None]
